FAERS Safety Report 10736797 (Version 1)
Quarter: 2015Q1

REPORT INFORMATION
  Report Type: Report from Study
  Country: BR (occurrence: BR)
  Receive Date: 20150126
  Receipt Date: 20150126
  Transmission Date: 20150721
  Serious: Yes (Other)
  Sender: FDA-Public Use
  Company Number: BR-ABBVIE-15K-020-1335145-00

PATIENT
  Sex: Male
  Weight: 83 kg

DRUGS (13)
  1. OMEPRAZOLE. [Concomitant]
     Active Substance: OMEPRAZOLE
     Indication: PROPHYLAXIS
  2. LOSARTAN [Concomitant]
     Active Substance: LOSARTAN
     Indication: CARDIAC DISORDER
     Route: 048
     Dates: start: 201205
  3. FOLIC ACID. [Concomitant]
     Active Substance: FOLIC ACID
     Indication: VITAMIN SUPPLEMENTATION
     Route: 048
     Dates: start: 201108
  4. RIVOTRIL [Concomitant]
     Active Substance: CLONAZEPAM
     Indication: CEREBRAL DISORDER
  5. PARACETAMOL [Concomitant]
     Active Substance: ACETAMINOPHEN
     Indication: PAIN
     Route: 048
     Dates: start: 2013
  6. HUMIRA [Suspect]
     Active Substance: ADALIMUMAB
     Indication: RHEUMATOID ARTHRITIS
     Route: 058
     Dates: start: 201305
  7. PREDNISONE. [Concomitant]
     Active Substance: PREDNISONE
     Indication: RHEUMATOID ARTHRITIS
     Dosage: ONE TABLET DAILY OR TWO TABLETS DAILY, IN COLD WEATHER
     Route: 048
     Dates: start: 20110422
  8. METHOTREXATE [Concomitant]
     Active Substance: METHOTREXATE
     Indication: RHEUMATOID ARTHRITIS
     Route: 048
     Dates: start: 20110422
  9. IBUPROFEN. [Concomitant]
     Active Substance: IBUPROFEN
     Indication: RHEUMATOID ARTHRITIS
     Route: 048
     Dates: start: 20110422
  10. CYCLOBENZAPRINE [Concomitant]
     Active Substance: CYCLOBENZAPRINE
     Indication: PAIN
     Dosage: ONE TABLET DAILY OR TWO TABLETS DAILY, IN COLD WEATHER
     Route: 048
     Dates: start: 2012
  11. OMEPRAZOLE. [Concomitant]
     Active Substance: OMEPRAZOLE
     Indication: GASTRIC DISORDER
     Route: 048
     Dates: start: 201104
  12. GARDENAL [Concomitant]
     Active Substance: PHENOBARBITAL
     Indication: DEPRESSION
     Route: 048
     Dates: start: 2013
  13. RIVOTRIL [Concomitant]
     Active Substance: CLONAZEPAM
     Indication: DEPRESSION
     Route: 048
     Dates: start: 2011

REACTIONS (10)
  - Fibromyalgia [Not Recovered/Not Resolved]
  - Seizure [Unknown]
  - Pain [Not Recovered/Not Resolved]
  - Depression [Unknown]
  - Dry eye [Not Recovered/Not Resolved]
  - Injection site swelling [Not Recovered/Not Resolved]
  - Swelling [Not Recovered/Not Resolved]
  - Gout [Recovering/Resolving]
  - Joint swelling [Not Recovered/Not Resolved]
  - Injection site erythema [Not Recovered/Not Resolved]

NARRATIVE: CASE EVENT DATE: 2013
